FAERS Safety Report 5637881-X (Version None)
Quarter: 2008Q1

REPORT INFORMATION
  Report Type: 
  Country: None (occurrence: None)
  Receive Date: 20080225
  Receipt Date: 20080225
  Transmission Date: 20080703
  Serious: No
  Sender: FDA-Public Use
  Company Number: None

PATIENT
  Age: 51 Year
  Sex: Male
  Weight: 132 kg

DRUGS (1)
  1. ZOSYN [Suspect]
     Indication: CELLULITIS
     Dosage: 3.375 G IV Q 6 HRS
     Route: 042
     Dates: start: 20080220

REACTIONS (3)
  - AGITATION [None]
  - HYPOAESTHESIA [None]
  - PRURITUS [None]
